FAERS Safety Report 14967778 (Version 4)
Quarter: 2018Q3

REPORT INFORMATION
  Report Type: Spontaneous
  Country: US (occurrence: US)
  Receive Date: 20180604
  Receipt Date: 20180711
  Transmission Date: 20181010
  Serious: No
  Sender: FDA-Public Use
  Company Number: US-PFIZER INC-2018222896

PATIENT
  Age: 75 Year
  Sex: Female
  Weight: 82.99 kg

DRUGS (6)
  1. LYRICA [Suspect]
     Active Substance: PREGABALIN
     Indication: PERIPHERAL NERVE TRANSPOSITION
     Dosage: 50 MG, 3X/DAY
     Route: 048
     Dates: start: 2017, end: 201802
  2. K?LOR [Concomitant]
     Active Substance: POTASSIUM CHLORIDE
     Indication: BLOOD POTASSIUM DECREASED
     Dosage: 10 MEQ, 1X/DAY
  3. LYRICA [Suspect]
     Active Substance: PREGABALIN
     Indication: PAIN IN EXTREMITY
     Dosage: 25 MG, 2X/DAY
     Route: 048
  4. FUROSEMIDE. [Concomitant]
     Active Substance: FUROSEMIDE
     Dosage: 40 MG, DAILY
  5. LYRICA [Suspect]
     Active Substance: PREGABALIN
     Indication: NEUROPATHY PERIPHERAL
     Dosage: 50 MG, 3X/DAY
     Route: 048
     Dates: start: 20160321
  6. MAGNESIUM [Concomitant]
     Active Substance: MAGNESIUM
     Indication: BLOOD POTASSIUM DECREASED
     Dosage: 500 MG, DAILY

REACTIONS (6)
  - Memory impairment [Not Recovered/Not Resolved]
  - Intentional product misuse [Unknown]
  - Hunger [Unknown]
  - Disturbance in attention [Recovering/Resolving]
  - Thinking abnormal [Recovering/Resolving]
  - Cognitive disorder [Recovering/Resolving]

NARRATIVE: CASE EVENT DATE: 2017
